FAERS Safety Report 5885485-6 (Version None)
Quarter: 2008Q3

REPORT INFORMATION
  Report Type: 
  Country: None (occurrence: None)
  Receive Date: 20080916
  Receipt Date: 20080908
  Transmission Date: 20090109
  Serious: Yes (Other)
  Sender: FDA-Public Use
  Company Number: SE-BRISTOL-MYERS SQUIBB COMPANY-14333892

PATIENT
  Age: 56 Year
  Sex: Male
  Weight: 75 kg

DRUGS (5)
  1. CETUXIMAB [Suspect]
     Indication: COLORECTAL CANCER
     Dosage: REDUCED TO 250MG\M2 THERAPY DATE 25-JUN-2008-ONGOING;STRENGTH-5MG/ML
     Route: 042
     Dates: start: 20080611, end: 20080611
  2. ELOXATIN [Suspect]
     Indication: COLORECTAL CANCER
     Route: 042
     Dates: start: 20080611
  3. LEUCOVORIN CALCIUM [Suspect]
     Indication: COLORECTAL CANCER
     Route: 042
     Dates: start: 20080611
  4. FLURACEDYL [Suspect]
     Indication: COLORECTAL CANCER
     Dosage: ALSO 2400 MG/M2(INTRAVENOUS) THERAPY DATE: 11-JUN-2008-ONGOING
     Route: 040
     Dates: start: 20080611
  5. AVASTIN [Suspect]
     Route: 042
     Dates: start: 20080611

REACTIONS (1)
  - VENOUS THROMBOSIS [None]
